FAERS Safety Report 7632500-5 (Version None)
Quarter: 2011Q3

REPORT INFORMATION
  Report Type: 
  Country: None (occurrence: None)
  Receive Date: 20110725
  Receipt Date: 20100921
  Transmission Date: 20111222
  Serious: No
  Sender: FDA-Public Use
  Company Number: US-BRISTOL-MYERS SQUIBB COMPANY-15297096

PATIENT
  Age: 47 Year
  Sex: Male
  Weight: 72 kg

DRUGS (4)
  1. COUMADIN [Suspect]
     Indication: THROMBOSIS
     Dosage: 1 DF=5 MG AND 10 MG TABLETS.
     Dates: start: 20090901
  2. NOVOLIN R [Concomitant]
  3. NOVOLIN N [Concomitant]
  4. LASIX [Concomitant]

REACTIONS (1)
  - OEDEMA PERIPHERAL [None]
